FAERS Safety Report 15495702 (Version 2)
Quarter: 2018Q4

REPORT INFORMATION
  Report Type: Spontaneous
  Country: BA (occurrence: BA)
  Receive Date: 20181013
  Receipt Date: 20181013
  Transmission Date: 20190205
  Serious: Yes (Other)
  Sender: FDA-Public Use
  Company Number: PHHY2018BA120636

PATIENT
  Sex: Male
  Weight: 2.89 kg

DRUGS (4)
  1. DEXAMETHASONE. [Suspect]
     Active Substance: DEXAMETHASONE
     Indication: FOETAL EXPOSURE DURING PREGNANCY
     Route: 064
  2. HEPARIN [Suspect]
     Active Substance: HEPARIN SODIUM
     Indication: FOETAL EXPOSURE DURING PREGNANCY
     Dosage: PARENTAL DOSE: 20 INTERNATIONAL UNITS
     Route: 064
  3. CEPHALEXIN. [Suspect]
     Active Substance: CEPHALEXIN
     Indication: FOETAL EXPOSURE DURING PREGNANCY
     Dosage: PARENTAL DOSE: 500 MG, QID
     Route: 064
  4. AMOXICILLIN / CLAVULANSAURE [Suspect]
     Active Substance: AMOXICILLIN\CLAVULANIC ACID
     Indication: FOETAL EXPOSURE DURING PREGNANCY
     Dosage: PARENTAL DOSE: 625 MG, TID
     Route: 064

REACTIONS (7)
  - Hypotonia [Unknown]
  - Neonatal asphyxia [Unknown]
  - Cyanosis [Unknown]
  - Foetal exposure during pregnancy [Unknown]
  - Hyporeflexia [Unknown]
  - Pallor [Unknown]
  - Premature baby [Unknown]
